FAERS Safety Report 10615475 (Version 8)
Quarter: 2015Q4

REPORT INFORMATION
  Report Type: Spontaneous
  Country: US (occurrence: US)
  Receive Date: 20141201
  Receipt Date: 20151103
  Transmission Date: 20160304
  Serious: No
  Sender: FDA-Public Use
  Company Number: US-PFIZER INC-2014326459

PATIENT
  Age: 61 Year
  Sex: Female
  Weight: 113 kg

DRUGS (9)
  1. SUTENT [Suspect]
     Active Substance: SUNITINIB MALATE
     Dosage: 25 MG, CYCLIC (FOR 4 WEEKS ON AND 2 WEEKS OFF)
     Dates: start: 20150101, end: 201501
  2. SUTENT [Suspect]
     Active Substance: SUNITINIB MALATE
     Indication: RENAL CANCER METASTATIC
     Dosage: 37.5 UNK, UNK
     Dates: end: 20140912
  3. SUTENT [Suspect]
     Active Substance: SUNITINIB MALATE
     Dosage: 37.5 MG, 1X/DAY
     Dates: start: 20141028, end: 20141231
  4. SUTENT [Suspect]
     Active Substance: SUNITINIB MALATE
     Dosage: 25 MG, ALTERNATE DAY (25MG ALTERNATING DAYS )
     Dates: start: 20150311
  5. METOPROLOL [Concomitant]
     Active Substance: METOPROLOL
     Dosage: UNK
  6. LIPITOR [Concomitant]
     Active Substance: ATORVASTATIN CALCIUM
     Dosage: UNK
  7. GLIMEPIRIDE. [Concomitant]
     Active Substance: GLIMEPIRIDE
     Dosage: UNK
  8. SUTENT [Suspect]
     Active Substance: SUNITINIB MALATE
     Dosage: 12.5 MG, ALTERNATE DAY
     Dates: start: 20141028
  9. LISINOPRIL AND HYDROCHLOROTHIAZIDE [Concomitant]
     Active Substance: HYDROCHLOROTHIAZIDE\LISINOPRIL
     Dosage: UNK

REACTIONS (13)
  - Platelet count decreased [Unknown]
  - Renal cancer metastatic [Unknown]
  - Blood glucose decreased [Not Recovered/Not Resolved]
  - White blood cell count decreased [Unknown]
  - Oral discomfort [Not Recovered/Not Resolved]
  - Oral pain [Recovering/Resolving]
  - Stomatitis [Not Recovered/Not Resolved]
  - Tremor [Not Recovered/Not Resolved]
  - Alopecia [Not Recovered/Not Resolved]
  - Hair colour changes [Not Recovered/Not Resolved]
  - Disease progression [Unknown]
  - Stomatitis [Recovering/Resolving]
  - Skin lesion [Recovered/Resolved]

NARRATIVE: CASE EVENT DATE: 2014
